FAERS Safety Report 16421480 (Version 1)
Quarter: 2019Q2

REPORT INFORMATION
  Report Type: Spontaneous
  Country: DE (occurrence: DE)
  Receive Date: 20190612
  Receipt Date: 20190612
  Transmission Date: 20190711
  Serious: Yes (Other)
  Sender: FDA-Public Use
  Company Number: DE-SA-2019SA149206

PATIENT
  Age: 38 Year
  Sex: Female
  Weight: 68 kg

DRUGS (5)
  1. CETIRIZINE [Concomitant]
     Active Substance: CETIRIZINE HYDROCHLORIDE
     Indication: SEASONAL ALLERGY
     Dosage: 10 UNK
     Route: 048
  2. FOLSAEURE [Concomitant]
     Active Substance: FOLIC ACID
     Indication: PROPHYLAXIS OF NEURAL TUBE DEFECT
     Dosage: 5 MG, QD
     Route: 048
  3. LEFLUNOMIDE. [Suspect]
     Active Substance: LEFLUNOMIDE
     Indication: RHEUMATOID ARTHRITIS
     Dosage: 20 MG, QD
     Route: 048
     Dates: start: 20190108, end: 20190206
  4. COLESTYRAMINE [Concomitant]
     Active Substance: CHOLESTYRAMINE
     Indication: DETOXIFICATION
     Dosage: UNK
     Route: 048
     Dates: start: 20190215, end: 20190226
  5. NOVOPULMON [Concomitant]
     Active Substance: BUDESONIDE
     Indication: ASTHMA
     Dosage: UNK
     Route: 055
     Dates: start: 20190108, end: 20190215

REACTIONS (2)
  - Exposure during pregnancy [Unknown]
  - Abortion missed [Recovered/Resolved]
